FAERS Safety Report 24608784 (Version 2)
Quarter: 2024Q4

REPORT INFORMATION
  Report Type: Spontaneous
  Country: BR (occurrence: BR)
  Receive Date: 20241112
  Receipt Date: 20241127
  Transmission Date: 20250115
  Serious: Yes (Other)
  Sender: ELI LILLY AND COMPANY
  Company Number: BR-ELI_LILLY_AND_COMPANY-BR202410019994

PATIENT
  Sex: Female

DRUGS (9)
  1. CYMBALTA [Suspect]
     Active Substance: DULOXETINE HYDROCHLORIDE
     Indication: Fibromyalgia
     Dosage: UNK UNK, UNKNOWN
     Route: 065
     Dates: start: 2017
  2. CYMBALTA [Suspect]
     Active Substance: DULOXETINE HYDROCHLORIDE
     Dosage: EVERY OTHER DAY
     Route: 065
     Dates: start: 2020
  3. CYMBALTA [Suspect]
     Active Substance: DULOXETINE HYDROCHLORIDE
     Dosage: ONE EVERY OTHER DAY
     Route: 065
  4. CYMBALTA [Suspect]
     Active Substance: DULOXETINE HYDROCHLORIDE
     Dosage: IN THE MORNING
     Route: 065
     Dates: start: 2024
  5. TRAZODONE HYDROCHLORIDE [Concomitant]
     Active Substance: TRAZODONE HYDROCHLORIDE
     Indication: Fibromyalgia
     Dosage: UNK UNK, UNKNOWN (AT NIGHT)
     Route: 065
  6. VITAMINS [Concomitant]
     Active Substance: VITAMINS
     Indication: Product used for unknown indication
     Dosage: UNK UNK, UNKNOWN
     Route: 065
  7. CHLOROQUINE [Concomitant]
     Active Substance: CHLOROQUINE
     Indication: Product used for unknown indication
     Dosage: UNK, UNKNOWN
     Route: 065
  8. HYDROXYCHLOROQUINE [Concomitant]
     Active Substance: HYDROXYCHLOROQUINE
     Indication: Product used for unknown indication
     Dosage: UNK, UNKNOWN
     Route: 065
  9. REUMAQUIN [Concomitant]
     Indication: Product used for unknown indication
     Dosage: UNK, UNKNOWN
     Route: 065

REACTIONS (14)
  - Systemic lupus erythematosus [Unknown]
  - Pain [Unknown]
  - Mucosal dryness [Unknown]
  - Nasal dryness [Unknown]
  - Eye irritation [Unknown]
  - Tongue discomfort [Unknown]
  - Nasal discomfort [Unknown]
  - Intentional product misuse [Unknown]
  - Eye infection [Unknown]
  - Wound [Unknown]
  - Arthralgia [Unknown]
  - Tongue dry [Unknown]
  - Dry eye [Unknown]
  - Dry mouth [Unknown]

NARRATIVE: CASE EVENT DATE: 20200101
